FAERS Safety Report 7918255-5 (Version None)
Quarter: 2011Q4

REPORT INFORMATION
  Report Type: 
  Country: None (occurrence: None)
  Receive Date: 20111116
  Receipt Date: 20111110
  Transmission Date: 20120403
  Serious: Yes (Other)
  Sender: FDA-Public Use
  Company Number: US-GLAXOSMITHKLINE-A0952208A

PATIENT
  Age: 26 Year
  Sex: Female

DRUGS (2)
  1. CORTICOSTEROIDS [Suspect]
     Indication: IDIOPATHIC THROMBOCYTOPENIC PURPURA
     Dates: start: 20100127
  2. PROMACTA [Suspect]
     Indication: IDIOPATHIC THROMBOCYTOPENIC PURPURA
     Dosage: 75MG PER DAY
     Dates: start: 20110112, end: 20110501

REACTIONS (5)
  - MUCOSAL HAEMORRHAGE [None]
  - CONTUSION [None]
  - SPLENECTOMY [None]
  - DRUG INEFFECTIVE [None]
  - SKIN HAEMORRHAGE [None]
